FAERS Safety Report 9458037 (Version 1)
Quarter: 2013Q3

REPORT INFORMATION
  Report Type: Spontaneous
  Country: US (occurrence: US)
  Receive Date: 20130814
  Receipt Date: 20130814
  Transmission Date: 20140515
  Serious: Yes (Other)
  Sender: FDA-Public Use
  Company Number: US-AMGEN-USASP2013056505

PATIENT
  Age: 64 Year
  Sex: Female

DRUGS (4)
  1. PROCRIT [Suspect]
     Indication: ANAEMIA
     Dosage: UNK UNK, 2 TIMES/WK
     Route: 065
  2. INCIVEK [Suspect]
     Indication: HEPATITIS C
     Dosage: UNK
     Route: 048
     Dates: start: 20130507, end: 20130730
  3. PEGASYS [Suspect]
     Indication: HEPATITIS C
     Dosage: UNK
     Route: 065
     Dates: start: 20130507
  4. RIBAVIRIN [Suspect]
     Indication: HEPATITIS C
     Dosage: 200 MG, QD
     Route: 065
     Dates: start: 20130506

REACTIONS (4)
  - Anaemia [Not Recovered/Not Resolved]
  - Dyspnoea [Not Recovered/Not Resolved]
  - White blood cell count decreased [Not Recovered/Not Resolved]
  - Stomatitis [Not Recovered/Not Resolved]
